FAERS Safety Report 6565649-9 (Version None)
Quarter: 2010Q1

REPORT INFORMATION
  Report Type: 
  Country: None (occurrence: None)
  Receive Date: 20100126
  Receipt Date: 20100113
  Transmission Date: 20100710
  Serious: Yes (Other)
  Sender: FDA-Public Use
  Company Number: 230457J10USA

PATIENT
  Age: 32 Year
  Sex: Female
  Weight: 143 kg

DRUGS (4)
  1. REBIF [Suspect]
     Indication: MULTIPLE SCLEROSIS
     Dosage: 44 MCG, 3 IN 1 WEEKS, SUBCUTANEOUS
     Route: 058
     Dates: start: 20091029
  2. CARDIZEM 9DILTIAZEM /00489701/) [Concomitant]
  3. TYLENOL [Concomitant]
  4. UNSPECIFIED SLEEPING PILL (ALL OTHER THERAPEUTIC PRODUCTS) [Concomitant]

REACTIONS (3)
  - CYST [None]
  - HYPOSMIA [None]
  - SINUS DISORDER [None]
